FAERS Safety Report 9692819 (Version 2)
Quarter: 2013Q4

REPORT INFORMATION
  Report Type: Report from Study
  Country: HU (occurrence: HU)
  Receive Date: 20131118
  Receipt Date: 20131118
  Transmission Date: 20140711
  Serious: Yes (Other)
  Sender: FDA-Public Use
  Company Number: HU-JNJFOC-20131100457

PATIENT
  Age: 73 Year
  Sex: Male

DRUGS (2)
  1. STELARA [Suspect]
     Indication: PSORIASIS
     Route: 058
     Dates: start: 20100824
  2. NEOTIGASON [Concomitant]

REACTIONS (4)
  - Neoplasm [Unknown]
  - Therapeutic response decreased [Unknown]
  - Hypertonia [Unknown]
  - Arthralgia [Unknown]
